FAERS Safety Report 17216070 (Version 1)
Quarter: 2019Q4

REPORT INFORMATION
  Report Type: Spontaneous
  Country: US (occurrence: US)
  Receive Date: 20191230
  Receipt Date: 20191230
  Transmission Date: 20200122
  Serious: No
  Sender: FDA-Public Use
  Company Number: US-SA-2019SA356519

PATIENT
  Age: 59 Year
  Sex: Female

DRUGS (1)
  1. ADMELOG [Suspect]
     Active Substance: INSULIN LISPRO
     Dosage: BETWEEN 40 TO 50 UNITS
     Route: 065

REACTIONS (9)
  - Arthralgia [Unknown]
  - Arthritis [Unknown]
  - Dysstasia [Unknown]
  - Weight increased [Unknown]
  - Limb injury [Unknown]
  - Sitting disability [Unknown]
  - Condition aggravated [Unknown]
  - Muscle swelling [Unknown]
  - Gait inability [Unknown]
